FAERS Safety Report 23409040 (Version 3)
Quarter: 2025Q1

REPORT INFORMATION
  Report Type: Spontaneous
  Country: JP (occurrence: JP)
  Receive Date: 20240117
  Receipt Date: 20250207
  Transmission Date: 20250408
  Serious: Yes (Hospitalization)
  Sender: PFIZER
  Company Number: JP-PFIZER INC-PV202400006285

PATIENT
  Age: 3 Year
  Sex: Male

DRUGS (4)
  1. SIROLIMUS [Suspect]
     Active Substance: SIROLIMUS
     Indication: Lymphatic malformation
     Dosage: 1 MG,1 D
     Route: 048
     Dates: start: 20231110, end: 2023
  2. HERBALS [Concomitant]
     Active Substance: HERBALS
     Dosage: 2 GM,1 D
  3. HERBALS [Concomitant]
     Active Substance: HERBALS
     Dosage: 5 GM,1 D
  4. HERBALS [Concomitant]
     Active Substance: HERBALS
     Dosage: 7.5 GM,1 D

REACTIONS (7)
  - Subcutaneous abscess [Recovered/Resolved]
  - Shunt infection [Recovered/Resolved]
  - Staphylococcal infection [Recovered/Resolved]
  - C-reactive protein decreased [Recovered/Resolved]
  - Drug level increased [Recovering/Resolving]
  - Off label use [Unknown]
  - Off label use [Unknown]

NARRATIVE: CASE EVENT DATE: 20230101
